FAERS Safety Report 4393425-4 (Version None)
Quarter: 2004Q3

REPORT INFORMATION
  Report Type: 
  Country: None (occurrence: None)
  Receive Date: 20040709
  Receipt Date: 20040705
  Transmission Date: 20050211
  Serious: Yes (Death)
  Sender: FDA-Public Use
  Company Number: 200416650GDDC

PATIENT
  Age: 59 Year
  Sex: Female

DRUGS (8)
  1. ARAVA [Suspect]
     Indication: RHEUMATOID ARTHRITIS
     Route: 048
     Dates: start: 20010101, end: 20040601
  2. CARBIMAZOLE [Concomitant]
     Indication: HYPERTHYROIDISM
     Route: 048
     Dates: start: 20000101
  3. LOSEC [Concomitant]
     Indication: GASTRITIS EROSIVE
     Route: 048
     Dates: start: 20040301
  4. HYDROXYCHLOROQUINE SULFATE [Concomitant]
     Indication: RHEUMATOID ARTHRITIS
     Route: 048
     Dates: start: 20011201
  5. LISINOPRIL [Concomitant]
     Indication: HYPERTENSION
     Route: 048
     Dates: start: 20040301
  6. INSULIN HUMAN [Concomitant]
     Indication: DIABETES MELLITUS
     Dosage: DOSE: UNK
     Route: 058
     Dates: start: 20040301
  7. METFORMIN [Concomitant]
     Dosage: DOSE: UNK
  8. IRON SULPHATE [Concomitant]
     Indication: ANAEMIA
     Route: 048
     Dates: start: 20040401

REACTIONS (7)
  - BRAIN NEOPLASM MALIGNANT [None]
  - GASTRITIS EROSIVE [None]
  - HEPATIC FAILURE [None]
  - HEPATIC NEOPLASM MALIGNANT [None]
  - HEPATITIS ACUTE [None]
  - LUNG NEOPLASM MALIGNANT [None]
  - NEOPLASM MALIGNANT [None]
